FAERS Safety Report 10503936 (Version 1)
Quarter: 2014Q4

REPORT INFORMATION
  Report Type: Spontaneous
  Country: US (occurrence: None)
  Receive Date: 20141006
  Receipt Date: 20141006
  Transmission Date: 20150528
  Serious: Yes (Death, Hospitalization, Other)
  Sender: FDA-Public Use
  Company Number: 2014COV00125

PATIENT
  Age: 76 Year
  Sex: Male

DRUGS (16)
  1. METOPROLOL SUCCINATE. [Concomitant]
     Active Substance: METOPROLOL SUCCINATE
  2. BUPROPION HYDROCHLORIDE. [Suspect]
     Active Substance: BUPROPION HYDROCHLORIDE
     Route: 048
     Dates: start: 20091209
  3. PRAVASTATIN SODIUM. [Concomitant]
     Active Substance: PRAVASTATIN SODIUM
  4. ESOMEPRAZOLE [Concomitant]
     Active Substance: ESOMEPRAZOLE
  5. MULTIVITAMIN [Concomitant]
     Active Substance: VITAMINS
  6. DABIGATRAN ETEXILATE MESILATE [Concomitant]
  7. PREGABALIN. [Concomitant]
     Active Substance: PREGABALIN
  8. LEXAPRO [Concomitant]
     Active Substance: ESCITALOPRAM OXALATE
  9. DUTASTERIDE. [Concomitant]
     Active Substance: DUTASTERIDE
     Route: 048
     Dates: start: 20120518
  10. TAMSULOSIN HCI [Concomitant]
  11. VITAMIN D [Concomitant]
     Active Substance: CHOLECALCIFEROL
  12. LORAZEPAM. [Concomitant]
     Active Substance: LORAZEPAM
  13. SPIRONOLACTONE. [Concomitant]
     Active Substance: SPIRONOLACTONE
  14. FRUSEMIDE [Concomitant]
     Active Substance: FUROSEMIDE
  15. DIGOXIN (DIGOXIN) (UNKNOWN) (DIGOXIN) [Suspect]
     Active Substance: DIGOXIN
     Dates: start: 20071126
  16. DUTASTERIDE. [Concomitant]
     Active Substance: DUTASTERIDE
     Indication: MICTURITION URGENCY
     Route: 048
     Dates: start: 20120518

REACTIONS (6)
  - Balance disorder [None]
  - Amnesia [None]
  - Depressed mood [None]
  - Malaise [None]
  - Feeling abnormal [None]
  - Fall [None]

NARRATIVE: CASE EVENT DATE: 20130401
